FAERS Safety Report 10776010 (Version 3)
Quarter: 2015Q2

REPORT INFORMATION
  Report Type: Report from Study
  Country: US (occurrence: US)
  Receive Date: 20150209
  Receipt Date: 20150420
  Transmission Date: 20150821
  Serious: Yes (Hospitalization, Other)
  Sender: FDA-Public Use
  Company Number: US-BIOMARINAP-US-2014-105485

PATIENT
  Age: 51 Year
  Sex: Female

DRUGS (1)
  1. ALDURAZYME [Suspect]
     Active Substance: LARONIDASE
     Indication: MUCOPOLYSACCHARIDOSIS I
     Dosage: 31.9 MG, QW
     Route: 042
     Dates: start: 200704

REACTIONS (6)
  - Fatigue [Unknown]
  - Dizziness [Unknown]
  - Renal failure [Not Recovered/Not Resolved]
  - Incorrect drug administration rate [Unknown]
  - Cellulitis [Not Recovered/Not Resolved]
  - Nausea [Unknown]

NARRATIVE: CASE EVENT DATE: 20150116
